FAERS Safety Report 18503241 (Version 4)
Quarter: 2021Q1

REPORT INFORMATION
  Report Type: Report from Study
  Country: None (occurrence: CH)
  Receive Date: 20201114
  Receipt Date: 20210128
  Transmission Date: 20210419
  Serious: Yes (Death, Life-Threatening, Hospitalization, Other)
  Sender: FDA-Public Use
  Company Number: CH-ABBVIE-20K-151-3646333-00

PATIENT
  Age: 77 Year
  Sex: Female
  Weight: 61 kg

DRUGS (14)
  1. BISOPROLOL [Concomitant]
     Active Substance: BISOPROLOL
     Indication: ATRIAL FIBRILLATION
     Route: 048
  2. LEPONEX [Concomitant]
     Active Substance: CLOZAPINE
     Indication: PSYCHOTIC DISORDER
     Dosage: AS DIRECTED
     Route: 048
  3. DUODOPA [Suspect]
     Active Substance: CARBIDOPA\LEVODOPA
     Dosage: MD 4.0ML, CRD 3.1ML/H, CRN 0ML/H, ED 3.0ML?16H THERAPY
     Route: 050
     Dates: start: 20200903, end: 20200908
  4. ELTROXIN [Concomitant]
     Active Substance: LEVOTHYROXINE
     Indication: HYPOTHYROIDISM
     Route: 048
  5. BISOPROLOL [Concomitant]
     Active Substance: BISOPROLOL
     Indication: CARDIAC FAILURE
  6. DAFALGAN [Concomitant]
     Active Substance: ACETAMINOPHEN
     Indication: PAIN
     Route: 048
  7. MADOPAR [Concomitant]
     Active Substance: BENSERAZIDE HYDROCHLORIDE\LEVODOPA
     Indication: RESTLESS LEGS SYNDROME
     Dosage: AS DIRECTED
     Route: 048
  8. MORPHINE [Concomitant]
     Active Substance: MORPHINE
     Indication: DISCOMFORT
  9. DUODOPA [Suspect]
     Active Substance: CARBIDOPA\LEVODOPA
     Indication: PARKINSON^S DISEASE
     Dosage: 16H THERAPY?1 CASETTE A DAY
     Route: 050
     Dates: start: 20200720, end: 20200903
  10. CANNABIDIOL [Concomitant]
     Active Substance: CANNABIDIOL
     Indication: PAIN
     Route: 048
  11. DUODOPA [Suspect]
     Active Substance: CARBIDOPA\LEVODOPA
     Dosage: MD 4.0ML, CRD 3.1ML/H, CRN 1ML/H, ED 3.0ML?24H THERAPY
     Route: 050
     Dates: start: 20200908, end: 2020
  12. DUODOPA [Suspect]
     Active Substance: CARBIDOPA\LEVODOPA
     Dosage: MD 4.0ML, CRD 3.1ML/H, CRN 1ML/H, ED 3.0ML?24H THERAPY
     Route: 050
     Dates: start: 2020
  13. LIXIANA [Concomitant]
     Active Substance: EDOXABAN TOSYLATE
     Indication: ATRIAL FIBRILLATION
     Dosage: AS DIRECTED
     Route: 048
  14. MORPHINE [Concomitant]
     Active Substance: MORPHINE
     Indication: PAIN
     Dosage: AS REQUIRED
     Route: 048

REACTIONS (12)
  - Cardiac failure congestive [Unknown]
  - Parkinson^s disease [Not Recovered/Not Resolved]
  - COVID-19 pneumonia [Fatal]
  - Hallucination [Not Recovered/Not Resolved]
  - Respiratory disorder [Fatal]
  - COVID-19 [Fatal]
  - General physical health deterioration [Fatal]
  - Oxygen saturation decreased [Fatal]
  - Lung disorder [Fatal]
  - Bradykinesia [Not Recovered/Not Resolved]
  - Device dislocation [Not Recovered/Not Resolved]
  - Lung disorder [Fatal]

NARRATIVE: CASE EVENT DATE: 2020
